FAERS Safety Report 5524061-1 (Version None)
Quarter: 2007Q4

REPORT INFORMATION
  Report Type: 
  Country: None (occurrence: None)
  Receive Date: 20071121
  Receipt Date: 20071030
  Transmission Date: 20080405
  Serious: No
  Sender: FDA-Public Use
  Company Number: US-BOEHRINGER INGELHEIM PHARMACEUTICALS, INC.-2007-BP-23667BP

PATIENT
  Age: 76 Year
  Sex: Male

DRUGS (10)
  1. FLOMAX [Suspect]
     Indication: BENIGN PROSTATIC HYPERPLASIA
     Route: 048
     Dates: start: 20071024
  2. RANEXA [Suspect]
     Dates: start: 20071024
  3. PLAVIX [Concomitant]
  4. ATENOLOL [Concomitant]
  5. LISINOPRIL [Concomitant]
  6. ZETIA [Concomitant]
  7. ZOCOR [Concomitant]
  8. ISOSORBIDE MONONITRATE [Concomitant]
  9. ASPIRIN [Concomitant]
  10. NAPROSYN [Concomitant]

REACTIONS (1)
  - TREMOR [None]
